FAERS Safety Report 14480626 (Version 7)
Quarter: 2018Q2

REPORT INFORMATION
  Report Type: Report from Study
  Country: PA (occurrence: PA)
  Receive Date: 20180202
  Receipt Date: 20180412
  Transmission Date: 20180711
  Serious: Yes (Other)
  Sender: FDA-Public Use
  Company Number: PHHY2018PA014732

PATIENT
  Age: 53 Year
  Sex: Female

DRUGS (5)
  1. ENALAPRIL [Concomitant]
     Active Substance: ENALAPRIL
     Indication: HYPERTENSION
     Dosage: 1 DF, QD
     Route: 048
  2. AFINITOR [Suspect]
     Active Substance: EVEROLIMUS
     Indication: NEUROENDOCRINE TUMOUR
     Dosage: 10 MG, QD
     Route: 048
  3. ROSUVASTATIN. [Suspect]
     Active Substance: ROSUVASTATIN
     Indication: PRODUCT USED FOR UNKNOWN INDICATION
     Dosage: UNK, QHS ((2 EVERY NIGHT))
     Route: 065
  4. METFORMIN HYDROCHLORIDE. [Suspect]
     Active Substance: METFORMIN HYDROCHLORIDE
     Indication: DIABETES MELLITUS
     Dosage: 1 DF, QD
     Route: 065
  5. GLIBENCLAMIDE [Concomitant]
     Active Substance: GLYBURIDE
     Indication: DIABETES MELLITUS
     Dosage: 2 DF, QD (1 TABLET ORALLY IN AM AND 1 IN PM PER DAY)
     Route: 048

REACTIONS (15)
  - Chest pain [Unknown]
  - Blood cholesterol increased [Unknown]
  - Vomiting [Unknown]
  - Blood triglycerides increased [Unknown]
  - Diarrhoea [Unknown]
  - Noninfective gingivitis [Unknown]
  - Malaise [Unknown]
  - Gingival swelling [Recovered/Resolved]
  - Weight decreased [Unknown]
  - Alopecia [Unknown]
  - Decreased appetite [Not Recovered/Not Resolved]
  - Blood glucose increased [Unknown]
  - Headache [Unknown]
  - Nausea [Unknown]
  - Dysgeusia [Unknown]
